FAERS Safety Report 4357102-8 (Version None)
Quarter: 2004Q2

REPORT INFORMATION
  Report Type: 
  Country: None (occurrence: None)
  Receive Date: 20040507
  Receipt Date: 20040426
  Transmission Date: 20050107
  Serious: Yes (Hospitalization, Other)
  Sender: FDA-Public Use
  Company Number: 2004027922

PATIENT
  Age: 72 Year
  Sex: Male

DRUGS (4)
  1. ZITHROMAX [Suspect]
     Indication: ILL-DEFINED DISORDER
     Dosage: 500 MG (DAILY), ORAL
     Route: 048
     Dates: start: 20040322, end: 20040324
  2. PELEX (CAFFEINE, CHLORPHENAMINE MALEATE, PARACETAMOL, SALICYLAMIDE) [Concomitant]
  3. SERRAPEPTASE      (SERRAPEPTASE) [Concomitant]
  4. TEPRENONE (TEPRENONE) [Concomitant]

REACTIONS (6)
  - CANDIDIASIS [None]
  - DISSEMINATED INTRAVASCULAR COAGULATION [None]
  - FAECES DISCOLOURED [None]
  - MELAENA [None]
  - NEUTROPENIA [None]
  - PALLOR [None]
